FAERS Safety Report 8005537-4 (Version None)
Quarter: 2011Q4

REPORT INFORMATION
  Report Type: 
  Country: None (occurrence: None)
  Receive Date: 20111223
  Receipt Date: 20111221
  Transmission Date: 20120403
  Serious: Yes (Other)
  Sender: FDA-Public Use
  Company Number: ES-ROCHE-1024267

PATIENT
  Sex: Female

DRUGS (2)
  1. PEGINTERFERON ALFA-2A [Suspect]
     Indication: HEPATITIS C
     Route: 058
     Dates: start: 20110722, end: 20111007
  2. COPEGUS [Suspect]
     Indication: HEPATITIS C
     Route: 048
     Dates: start: 20110722, end: 20111007

REACTIONS (5)
  - BLOOD BILIRUBIN INCREASED [None]
  - JAUNDICE [None]
  - NAUSEA [None]
  - VOMITING [None]
  - TRANSAMINASES INCREASED [None]
